FAERS Safety Report 9789985 (Version 1)
Quarter: 2013Q4

REPORT INFORMATION
  Report Type: Spontaneous
  Country: US (occurrence: None)
  Receive Date: 20131230
  Receipt Date: 20131230
  Transmission Date: 20140711
  Serious: No
  Sender: FDA-Public Use
  Company Number: None

PATIENT
  Age: 28 Year
  Sex: Female
  Weight: 90.72 kg

DRUGS (1)
  1. MIRENA [Suspect]
     Dates: start: 20130304, end: 20130517

REACTIONS (4)
  - Vulvovaginal erythema [None]
  - Vulvovaginal dryness [None]
  - Dysuria [None]
  - Menorrhagia [None]
